FAERS Safety Report 9450225 (Version 2)
Quarter: 2013Q3

REPORT INFORMATION
  Report Type: Report from Study
  Country: TH (occurrence: TH)
  Receive Date: 20130809
  Receipt Date: 20130904
  Transmission Date: 20140515
  Serious: Yes (Hospitalization)
  Sender: FDA-Public Use
  Company Number: TH-009507513-1307THA016698

PATIENT
  Age: 34 Year
  Sex: Male
  Weight: 77 kg

DRUGS (3)
  1. PRE TRIAL THERAPY [Suspect]
     Indication: CHRONIC HEPATITIS C
     Dosage: UNK
  2. RIBAVIRIN [Suspect]
     Indication: CHRONIC HEPATITIS C
     Dosage: 3 DF, (1200MG/DAY) IN 2 DIVIDED DOSES
     Route: 048
     Dates: start: 20130724
  3. PEGINTERFERON ALFA-2A [Suspect]
     Indication: CHRONIC HEPATITIS C
     Dosage: 180 MICROGRAM, QW
     Route: 058
     Dates: start: 20130724

REACTIONS (1)
  - Headache [Recovered/Resolved]
